FAERS Safety Report 11878736 (Version 1)
Quarter: 2015Q4

REPORT INFORMATION
  Report Type: Spontaneous
  Country: FR (occurrence: FR)
  Receive Date: 20151230
  Receipt Date: 20151230
  Transmission Date: 20160305
  Serious: Yes (Death, Hospitalization, Other)
  Sender: FDA-Public Use
  Company Number: FR-BAYER-2015-439093

PATIENT
  Age: 57 Year
  Sex: Female
  Weight: 85 kg

DRUGS (2)
  1. STIVARGA [Suspect]
     Active Substance: REGORAFENIB
     Indication: COLORECTAL ADENOCARCINOMA
     Dosage: UNK
     Route: 048
     Dates: start: 20150922
  2. STIVARGA [Suspect]
     Active Substance: REGORAFENIB
     Indication: COLORECTAL ADENOCARCINOMA
     Dosage: UNK
     Dates: start: 20151004

REACTIONS (10)
  - Coma [None]
  - Amnesia [Fatal]
  - Headache [Fatal]
  - Asterixis [Fatal]
  - Asthenia [Fatal]
  - Somnolence [Fatal]
  - Altered state of consciousness [None]
  - Visual impairment [Fatal]
  - Confusional state [Fatal]
  - Posterior reversible encephalopathy syndrome [Fatal]

NARRATIVE: CASE EVENT DATE: 2015
